FAERS Safety Report 8978261 (Version 1)
Quarter: 2012Q4

REPORT INFORMATION
  Report Type: 
  Country: US (occurrence: US)
  Receive Date: 20121221
  Receipt Date: 20121221
  Transmission Date: 20130627
  Serious: Yes (Hospitalization)
  Sender: FDA-Public Use
  Company Number: US-SHIRE-ALL1-2012-06334

PATIENT
  Sex: Male

DRUGS (1)
  1. ELAPRASE [Suspect]
     Indication: MUCOPOLYSACCHARIDOSIS II
     Dosage: 18 mg, (3 vials) 1x/week
     Route: 041
     Dates: start: 20061009, end: 20121212

REACTIONS (2)
  - Infection [Not Recovered/Not Resolved]
  - Pain [Unknown]
